FAERS Safety Report 6913415-4 (Version None)
Quarter: 2010Q3

REPORT INFORMATION
  Report Type: 
  Country: None (occurrence: None)
  Receive Date: 20100805
  Receipt Date: 20100805
  Transmission Date: 20110219
  Serious: Yes (Hospitalization)
  Sender: FDA-Public Use
  Company Number: None

PATIENT
  Age: 53 Year
  Sex: Female
  Weight: 58.9676 kg

DRUGS (2)
  1. TYKERB [Suspect]
     Indication: BREAST CANCER METASTATIC
     Dosage: 1250 MG BID IN ERROR PO
     Route: 048
     Dates: start: 20100720, end: 20100726
  2. XELODA [Concomitant]

REACTIONS (8)
  - BURNING SENSATION [None]
  - BURNING SENSATION MUCOSAL [None]
  - CONFUSIONAL STATE [None]
  - DYSPEPSIA [None]
  - INAPPROPRIATE SCHEDULE OF DRUG ADMINISTRATION [None]
  - MEDICATION ERROR [None]
  - NAUSEA [None]
  - VOMITING [None]
